FAERS Safety Report 6341152-6 (Version None)
Quarter: 2009Q3

REPORT INFORMATION
  Report Type: 
  Country: None (occurrence: None)
  Receive Date: 20090904
  Receipt Date: 20090217
  Transmission Date: 20100115
  Serious: No
  Sender: FDA-Public Use
  Company Number: A0769854A

PATIENT
  Sex: Male

DRUGS (1)
  1. REQUIP XL [Suspect]
     Indication: DRUG USE FOR UNKNOWN INDICATION
     Route: 065

REACTIONS (6)
  - CONFUSIONAL STATE [None]
  - DYSKINESIA [None]
  - INSOMNIA [None]
  - NERVOUSNESS [None]
  - SENSORY DISTURBANCE [None]
  - TREMOR [None]
